FAERS Safety Report 5330728-0 (Version None)
Quarter: 2007Q2

REPORT INFORMATION
  Report Type: 
  Country: None (occurrence: None)
  Receive Date: 20070522
  Receipt Date: 20070514
  Transmission Date: 20071010
  Serious: Yes (Hospitalization, Other)
  Sender: FDA-Public Use
  Company Number: PHBS2007BR08166

PATIENT
  Age: 3 Year
  Sex: Male
  Weight: 12 kg

DRUGS (2)
  1. CATAFLAM [Suspect]
     Indication: PHARYNGITIS
     Dosage: 25 DRP, Q6H
     Route: 048
     Dates: start: 20070510
  2. CARBOCISTEINE [Concomitant]
     Indication: COUGH
     Dosage: 2.5 ML, TID
     Route: 048

REACTIONS (7)
  - BODY TEMPERATURE DECREASED [None]
  - DEPRESSED MOOD [None]
  - FAECES PALE [None]
  - HYPOTENSION [None]
  - PERIPHERAL COLDNESS [None]
  - POISONING [None]
  - VOMITING [None]
